FAERS Safety Report 22178913 (Version 4)
Quarter: 2023Q2

REPORT INFORMATION
  Report Type: Spontaneous
  Country: FR (occurrence: FR)
  Receive Date: 20230406
  Receipt Date: 20230510
  Transmission Date: 20230722
  Serious: Yes (Other)
  Sender: FDA-Public Use
  Company Number: FR-AstraZeneca-2023A063808

PATIENT
  Age: 68 Year
  Sex: Female

DRUGS (17)
  1. IMATINIB [Suspect]
     Active Substance: IMATINIB
     Indication: Gastrointestinal stromal tumour
     Dosage: 400 MILLIGRAM, ONCE A DAY
     Route: 065
     Dates: end: 200804
  2. IMATINIB [Suspect]
     Active Substance: IMATINIB
     Indication: Lung adenocarcinoma
     Dosage: 400 MILLIGRAM, ONCE A DAY
     Route: 065
     Dates: end: 202009
  3. IMATINIB [Suspect]
     Active Substance: IMATINIB
     Dosage: 300 MILLIGRAM, ONCE A DAY
     Route: 065
     Dates: end: 202110
  4. IMATINIB [Suspect]
     Active Substance: IMATINIB
     Dosage: 200 MILLIGRAM, ONCE A DAY
     Route: 065
     Dates: start: 202104
  5. IMATINIB [Suspect]
     Active Substance: IMATINIB
     Dosage: 200 MILLIGRAM, ONCE A DAY
     Route: 065
     Dates: start: 202201, end: 202203
  6. IMATINIB [Suspect]
     Active Substance: IMATINIB
     Dosage: 100 MILLIGRAM, ONCE A DAY
     Route: 065
     Dates: start: 202203, end: 202206
  7. IMATINIB [Suspect]
     Active Substance: IMATINIB
     Dosage: 200 MILLIGRAM, ONCE A DAY
     Route: 065
     Dates: start: 202206
  8. AFATINIB [Suspect]
     Active Substance: AFATINIB
     Indication: Lung adenocarcinoma
     Dosage: UNK
     Route: 065
     Dates: start: 2020
  9. CRIZOTINIB [Suspect]
     Active Substance: CRIZOTINIB
     Indication: Lung adenocarcinoma
     Dosage: 250 MILLIGRAM, ONCE A DAY
     Route: 065
     Dates: start: 202110
  10. CRIZOTINIB [Suspect]
     Active Substance: CRIZOTINIB
     Indication: Drug resistance
     Dosage: 250 MILLIGRAM, ONCE A DAY
     Route: 065
     Dates: start: 202111
  11. CRIZOTINIB [Suspect]
     Active Substance: CRIZOTINIB
     Dosage: 250 MILLIGRAM, ONCE A DAY
     Route: 065
     Dates: start: 202201
  12. CRIZOTINIB [Suspect]
     Active Substance: CRIZOTINIB
     Dosage: 200 MILLIGRAM, ONCE A DAY
     Route: 065
     Dates: end: 202203
  13. CRIZOTINIB [Suspect]
     Active Substance: CRIZOTINIB
     Dosage: 250 MILLIGRAM, ONCE A DAY
     Route: 065
     Dates: start: 202203, end: 202206
  14. OSIMERTINIB [Suspect]
     Active Substance: OSIMERTINIB
     Indication: Lung adenocarcinoma
     Dosage: 40 MILLIGRAM, ONCE A DAY
     Route: 048
     Dates: start: 202009
  15. OSIMERTINIB [Suspect]
     Active Substance: OSIMERTINIB
     Indication: Gastrointestinal stromal tumour
     Dosage: 80 MILLIGRAM, ONCE A DAY
     Route: 048
     Dates: start: 202009
  16. OSIMERTINIB [Suspect]
     Active Substance: OSIMERTINIB
     Dosage: 40 MILLIGRAM, ONCE A DAY
     Route: 065
     Dates: start: 202104
  17. OSIMERTINIB [Suspect]
     Active Substance: OSIMERTINIB
     Dosage: 300 MILLIGRAM, ONCE A DAY
     Route: 065
     Dates: start: 202104

REACTIONS (7)
  - Blood creatine phosphokinase increased [Recovered/Resolved]
  - Acute kidney injury [Unknown]
  - Drug resistance mutation [Unknown]
  - Drug interaction [Unknown]
  - Diarrhoea [Recovered/Resolved]
  - Off label use [Unknown]
  - Overdose [Unknown]

NARRATIVE: CASE EVENT DATE: 20200101
